FAERS Safety Report 14782765 (Version 1)
Quarter: 2018Q2

REPORT INFORMATION
  Report Type: Spontaneous
  Country: US (occurrence: US)
  Receive Date: 20180420
  Receipt Date: 20180420
  Transmission Date: 20180711
  Serious: No
  Sender: FDA-Public Use
  Company Number: US-VERTEX PHARMACEUTICALS-2018-002596

PATIENT
  Sex: Male

DRUGS (3)
  1. TOBI [Concomitant]
     Active Substance: TOBRAMYCIN
     Dosage: 112 MG, BID
     Route: 055
  2. KALYDECO [Suspect]
     Active Substance: IVACAFTOR
     Indication: CYSTIC FIBROSIS
     Dosage: 150 MG TABLETS, BID
     Route: 048
     Dates: start: 2015
  3. PULMOZYME [Concomitant]
     Active Substance: DORNASE ALFA
     Dosage: 1 MG/ML, BID
     Route: 055

REACTIONS (1)
  - Infective pulmonary exacerbation of cystic fibrosis [Recovered/Resolved]
